FAERS Safety Report 4534721-7 (Version None)
Quarter: 2004Q4

REPORT INFORMATION
  Report Type: 
  Country: None (occurrence: None)
  Receive Date: 20041222
  Receipt Date: 20031210
  Transmission Date: 20050328
  Serious: Yes (Other)
  Sender: FDA-Public Use
  Company Number: US-BRISTOL-MYERS SQUIBB COMPANY-12454237

PATIENT
  Age: 77 Year
  Sex: Female

DRUGS (4)
  1. PRAVACHOL [Suspect]
     Route: 048
  2. ZESTRIL [Concomitant]
  3. AEROBID [Concomitant]
  4. ALBUTEROL [Concomitant]

REACTIONS (1)
  - HEPATITIS CHOLESTATIC [None]
